FAERS Safety Report 20745039 (Version 1)
Quarter: 2022Q2

REPORT INFORMATION
  Report Type: Spontaneous
  Country: US (occurrence: None)
  Receive Date: 20220422
  Receipt Date: 20220422
  Transmission Date: 20220721
  Serious: Yes (Other)
  Sender: FDA-Public Use
  Company Number: None

PATIENT
  Age: 28 Year
  Sex: Female
  Weight: 49.5 kg

DRUGS (1)
  1. ARTNATURALS HAND SANITIZER MOISTURIZING FORMULA [Suspect]
     Active Substance: ALCOHOL
     Indication: Infection prophylaxis
     Dosage: OTHER FREQUENCY : WHENEVER NECESSARY;?
     Route: 061
     Dates: start: 20220422, end: 20220422

REACTIONS (6)
  - Liquid product physical issue [None]
  - Product odour abnormal [None]
  - Application site paraesthesia [None]
  - Application site pain [None]
  - Peripheral coldness [None]
  - Product contamination chemical [None]

NARRATIVE: CASE EVENT DATE: 20220422
